FAERS Safety Report 5057738-5 (Version None)
Quarter: 2006Q3

REPORT INFORMATION
  Report Type: 
  Country: None (occurrence: None)
  Receive Date: 20060721
  Receipt Date: 20060131
  Transmission Date: 20061208
  Serious: No
  Sender: FDA-Public Use
  Company Number: US-GLAXOSMITHKLINE-A0591740A

PATIENT
  Age: 50 Year
  Sex: Male

DRUGS (9)
  1. AVANDIA [Suspect]
     Dosage: 8MG PER DAY
     Route: 048
  2. TOPROL-XL [Concomitant]
  3. DIOVAN [Concomitant]
  4. PLAVIX [Concomitant]
  5. PREVACID [Concomitant]
  6. ASPIRIN [Concomitant]
  7. NIASPAN [Concomitant]
  8. VICODIN [Concomitant]
  9. NITRO [Concomitant]

REACTIONS (1)
  - DRUG INEFFECTIVE [None]
